FAERS Safety Report 8349478-1 (Version None)
Quarter: 2012Q2

REPORT INFORMATION
  Report Type: 
  Country: None (occurrence: None)
  Receive Date: 20120510
  Receipt Date: 20101229
  Transmission Date: 20120825
  Serious: No
  Sender: FDA-Public Use
  Company Number: US-TEVA-2010004796

PATIENT
  Sex: Male
  Weight: 187.5 kg

DRUGS (1)
  1. NUVIGIL [Suspect]
     Indication: SLEEP APNOEA SYNDROME
     Dosage: 250 MILLIGRAM;
     Route: 048
     Dates: start: 20100901, end: 20100908

REACTIONS (5)
  - RASH [None]
  - NERVOUSNESS [None]
  - SLEEP DISORDER [None]
  - DECREASED APPETITE [None]
  - WEIGHT DECREASED [None]
